FAERS Safety Report 9657291 (Version 2)
Quarter: 2013Q4

REPORT INFORMATION
  Report Type: Spontaneous
  Country: US (occurrence: US)
  Receive Date: 20131030
  Receipt Date: 20131126
  Transmission Date: 20140711
  Serious: Yes (Death, Hospitalization)
  Sender: FDA-Public Use
  Company Number: US-INCYTE CORPORATION-2013IN002512

PATIENT
  Age: 55 Year
  Sex: Female

DRUGS (7)
  1. JAKAFI [Suspect]
     Indication: MYELOFIBROSIS
     Dosage: 25 MG, QD
     Route: 048
     Dates: start: 201212
  2. JAKAFI [Suspect]
     Dosage: 25 MG, BID
     Route: 048
  3. MAXALT MLT [Concomitant]
     Dosage: 10 MG
  4. VALACYCLOVIR HCL PHARMA PAC [Concomitant]
     Dosage: 500 MG
  5. PREDNISONE [Concomitant]
     Dosage: 10 MG
  6. SYNTHROID [Concomitant]
     Dosage: 88 MCG
  7. GABAPENTIN [Concomitant]
     Dosage: 300 MG

REACTIONS (2)
  - Death [Fatal]
  - Hospitalisation [Unknown]
